FAERS Safety Report 13770382 (Version 2)
Quarter: 2017Q4

REPORT INFORMATION
  Report Type: Spontaneous
  Country: HU (occurrence: HU)
  Receive Date: 20170719
  Receipt Date: 20171027
  Transmission Date: 20180320
  Serious: Yes (Death, Other)
  Sender: FDA-Public Use
  Company Number: HU-B.I. PHARMACEUTICALS,INC./RIDGEFIELD-2017-BI-034535

PATIENT
  Age: 63 Year
  Sex: Female

DRUGS (1)
  1. OFEV [Suspect]
     Active Substance: NINTEDANIB
     Indication: IDIOPATHIC PULMONARY FIBROSIS
     Route: 065
     Dates: start: 201507

REACTIONS (4)
  - Death [Fatal]
  - Diarrhoea [Unknown]
  - Tracheal neoplasm [Unknown]
  - Vomiting [Unknown]
